FAERS Safety Report 10744228 (Version 1)
Quarter: 2015Q1

REPORT INFORMATION
  Report Type: Spontaneous
  Country: US (occurrence: None)
  Receive Date: 20150126
  Receipt Date: 20150126
  Transmission Date: 20150721
  Serious: Yes (Hospitalization)
  Sender: FDA-Public Use
  Company Number: None

PATIENT
  Age: 40 Year
  Sex: Male
  Weight: 95.2 kg

DRUGS (1)
  1. CLINDAMYCIN [Suspect]
     Active Substance: CLINDAMYCIN\CLINDAMYCIN PHOSPHATE
     Indication: FOLLICULITIS
     Dosage: 1 TAB
     Route: 048
     Dates: start: 20140731, end: 20140802

REACTIONS (4)
  - Acute kidney injury [None]
  - Hyperglycaemia [None]
  - Diarrhoea [None]
  - Hyperkalaemia [None]

NARRATIVE: CASE EVENT DATE: 20140801
